FAERS Safety Report 10003876 (Version 2)
Quarter: 2014Q1

REPORT INFORMATION
  Report Type: Spontaneous
  Country: US (occurrence: US)
  Receive Date: 20140312
  Receipt Date: 20140312
  Transmission Date: 20141002
  Serious: Yes (Hospitalization, Other)
  Sender: FDA-Public Use
  Company Number: US-ABBVIE-13P-163-1052718-00

PATIENT
  Age: 73 Year
  Sex: Male
  Weight: 77.18 kg

DRUGS (5)
  1. DEPAKOTE [Suspect]
     Indication: CONVULSION
     Dates: start: 2001, end: 201207
  2. UNKNOWN PARKINSON MEDICATION [Concomitant]
     Indication: PRODUCT USED FOR UNKNOWN INDICATION
     Dates: start: 2010
  3. MVI [Concomitant]
     Indication: PRODUCT USED FOR UNKNOWN INDICATION
  4. CALCIUM [Concomitant]
     Indication: PRODUCT USED FOR UNKNOWN INDICATION
  5. UNKNOWN CHOLESTEROL MEDICATION [Concomitant]
     Indication: PRODUCT USED FOR UNKNOWN INDICATION

REACTIONS (17)
  - Fall [Recovered/Resolved]
  - Concussion [Not Recovered/Not Resolved]
  - Clavicle fracture [Recovered/Resolved]
  - Hip fracture [Unknown]
  - Parkinsonism [Not Recovered/Not Resolved]
  - Mobility decreased [Unknown]
  - Faecal incontinence [Unknown]
  - Urinary incontinence [Unknown]
  - Depression [Unknown]
  - Memory impairment [Recovered/Resolved]
  - Fatigue [Unknown]
  - Fall [Unknown]
  - Pain [Unknown]
  - Fall [Unknown]
  - Fall [Recovering/Resolving]
  - Gait disturbance [Recovered/Resolved]
  - Emotional distress [Unknown]
